FAERS Safety Report 4589771-1 (Version None)
Quarter: 2005Q1

REPORT INFORMATION
  Report Type: 
  Country: None (occurrence: None)
  Receive Date: 20050223
  Receipt Date: 20050214
  Transmission Date: 20050727
  Serious: Yes (Life-Threatening)
  Sender: FDA-Public Use
  Company Number: PHNR2005AU00561

PATIENT
  Age: 82 Year
  Sex: Female

DRUGS (14)
  1. MERSYNDOL [Concomitant]
     Dosage: UNK, UNK
     Dates: start: 20050201, end: 20050201
  2. WARFARIN SODIUM [Suspect]
     Dosage: 2 MG, QD
     Dates: end: 20050201
  3. ACETAMINOPHEN W/ CODEINE [Concomitant]
     Indication: PAIN
     Dosage: UNK, UNK
     Dates: start: 20050201, end: 20050201
  4. FAMVIR [Suspect]
     Indication: HERPES ZOSTER
     Dosage: 250 MG, TID
     Route: 048
     Dates: start: 20050201, end: 20050201
  5. NEO-MERCAZOLE TAB [Concomitant]
     Dosage: 5 MG, QD
  6. NIFEDIPINE [Concomitant]
     Dosage: 30 MG
     Dates: end: 20050201
  7. CATAPRES [Concomitant]
     Dosage: 150 UG, BID
     Dates: end: 20050201
  8. SOLPRIN [Concomitant]
     Dosage: 150 MG, BID
     Dates: end: 20050201
  9. LANOXIN [Concomitant]
     Dosage: 62.5 UG, QD
     Dates: end: 20050201
  10. LASIX [Concomitant]
     Dosage: 40 MG, QD
     Dates: end: 20050201
  11. LOPID [Concomitant]
     Dosage: 600MG
     Dates: end: 20050201
  12. ATACAND [Concomitant]
     Dosage: 4 MG
     Dates: end: 20050201
  13. XALATAN [Concomitant]
     Dates: end: 20050201
  14. SALBUTAMOL AEROSOL [Concomitant]
     Dates: end: 20050201

REACTIONS (2)
  - DRUG INTERACTION [None]
  - INTERNATIONAL NORMALISED RATIO INCREASED [None]
